FAERS Safety Report 5726049-4 (Version None)
Quarter: 2008Q2

REPORT INFORMATION
  Report Type: 
  Country: None (occurrence: None)
  Receive Date: 20080502
  Receipt Date: 20080422
  Transmission Date: 20081010
  Serious: Yes (Other)
  Sender: FDA-Public Use
  Company Number: US-AMGEN-STX255208

PATIENT
  Sex: Female
  Weight: 54.5 kg

DRUGS (4)
  1. ENBREL [Suspect]
     Indication: AUTOIMMUNE DISORDER
     Route: 058
     Dates: start: 20071016, end: 20071120
  2. ROZEREM [Concomitant]
  3. METHOTREXATE [Concomitant]
     Route: 065
  4. HORMONE NOS [Concomitant]
     Route: 062

REACTIONS (5)
  - BALANCE DISORDER [None]
  - DIZZINESS [None]
  - LIVER FUNCTION TEST ABNORMAL [None]
  - MULTIPLE SCLEROSIS [None]
  - STRABISMUS [None]
